FAERS Safety Report 10481428 (Version 4)
Quarter: 2014Q4

REPORT INFORMATION
  Report Type: Spontaneous
  Country: US (occurrence: US)
  Receive Date: 20140929
  Receipt Date: 20141230
  Transmission Date: 20150528
  Serious: No
  Sender: FDA-Public Use
  Company Number: US-PFIZER INC-2014249176

PATIENT
  Age: 53 Year
  Sex: Female
  Weight: 59.9 kg

DRUGS (6)
  1. VITAMIN D3 [Concomitant]
     Active Substance: CHOLECALCIFEROL
     Dosage: UNK
  2. VAGIFEM [Concomitant]
     Active Substance: ESTRADIOL
     Dosage: UNK
  3. XALKORI [Suspect]
     Active Substance: CRIZOTINIB
     Indication: LUNG NEOPLASM MALIGNANT
     Dosage: 250 MG, 2X/DAY
     Route: 048
     Dates: start: 20140716
  4. SYNTHROID [Concomitant]
     Active Substance: LEVOTHYROXINE SODIUM
     Indication: THYROID DISORDER
     Dosage: 0.05 MG, DAILY
  5. SYMBICORT [Concomitant]
     Active Substance: BUDESONIDE\FORMOTEROL FUMARATE DIHYDRATE
     Dosage: UNK
  6. ALBUTEROL. [Concomitant]
     Active Substance: ALBUTEROL
     Dosage: UNK, AS NEEDED

REACTIONS (9)
  - Visual field defect [Not Recovered/Not Resolved]
  - Chromaturia [Not Recovered/Not Resolved]
  - Diplopia [Not Recovered/Not Resolved]
  - Urticaria [Recovered/Resolved]
  - Liver disorder [Recovered/Resolved]
  - Faeces pale [Recovered/Resolved]
  - Product use issue [Unknown]
  - Dysgeusia [Not Recovered/Not Resolved]
  - Blood creatinine increased [Not Recovered/Not Resolved]

NARRATIVE: CASE EVENT DATE: 2014
